FAERS Safety Report 6164648-9 (Version None)
Quarter: 2009Q2

REPORT INFORMATION
  Report Type: 
  Country: None (occurrence: None)
  Receive Date: 20090421
  Receipt Date: 20090414
  Transmission Date: 20091009
  Serious: Yes (Death, Other)
  Sender: FDA-Public Use
  Company Number: 2009PJ002026

PATIENT
  Age: 71 Year
  Sex: Male
  Weight: 56.9 kg

DRUGS (8)
  1. HARNAL (TAMSULOSIN) ORODISPERSIBLE CR TABLET [Suspect]
     Indication: BENIGN PROSTATIC HYPERPLASIA
     Dosage: 0.2 MG, /D, ORAL
     Route: 048
     Dates: start: 20081022, end: 20090407
  2. SOLIFENACIN BLINDED (CODE NOT BROKEN) TABLET, UNKNOWN [Concomitant]
     Indication: HYPERTONIC BLADDER
     Dosage: 2 DF, UID/QD, ORAL
     Route: 048
     Dates: start: 20090108, end: 20090407
  3. NSAID'S [Concomitant]
  4. LORCAM (LORNOXICAM) [Concomitant]
  5. METHYCOBAL (MECOBALAMIN) [Concomitant]
  6. AZULENE (AZULENE) [Concomitant]
  7. PREDNISOLONE [Concomitant]
  8. CARBOCAIN (MEPIVACINE HYDROCHLORIDE) [Concomitant]

REACTIONS (2)
  - INTERVERTEBRAL DISC PROTRUSION [None]
  - SUDDEN DEATH [None]
